FAERS Safety Report 10670632 (Version 1)
Quarter: 2014Q4

REPORT INFORMATION
  Report Type: Spontaneous
  Country: CA (occurrence: None)
  Receive Date: 20141219
  Receipt Date: 20141219
  Transmission Date: 20150529
  Serious: Yes (Hospitalization)
  Sender: FDA-Public Use
  Company Number: A1077225A

PATIENT
  Age: 56 Year
  Sex: Female

DRUGS (3)
  1. PAROXETINE HYDROCHLORIDE. [Suspect]
     Active Substance: PAROXETINE HYDROCHLORIDE
     Indication: ILL-DEFINED DISORDER
     Route: 048
  2. PAROXETINE HYDROCHLORIDE. [Suspect]
     Active Substance: PAROXETINE HYDROCHLORIDE
     Indication: ILL-DEFINED DISORDER
     Route: 048
  3. ESOMEPRAZOLE [Concomitant]
     Active Substance: ESOMEPRAZOLE

REACTIONS (9)
  - Headache [None]
  - Dehydration [None]
  - Disturbance in attention [None]
  - Hot flush [None]
  - Dizziness [None]
  - Nausea [None]
  - Dysgeusia [None]
  - Dyspepsia [None]
  - Tremor [None]
